FAERS Safety Report 22534447 (Version 2)
Quarter: 2023Q2

REPORT INFORMATION
  Report Type: Spontaneous
  Country: US (occurrence: US)
  Receive Date: 20230608
  Receipt Date: 20230616
  Transmission Date: 20230721
  Serious: No
  Sender: FDA-Public Use
  Company Number: US-002147023-NVSC2023US130957

PATIENT
  Sex: Female

DRUGS (2)
  1. DOCETAXEL [Suspect]
     Active Substance: DOCETAXEL
     Indication: Product used for unknown indication
     Dosage: UNK
     Route: 065
     Dates: start: 201411, end: 201501
  2. TAXOTERE [Suspect]
     Active Substance: DOCETAXEL
     Indication: Product used for unknown indication
     Dosage: UNK
     Route: 065
     Dates: start: 201411, end: 201501

REACTIONS (7)
  - Injury [Unknown]
  - Anxiety [Unknown]
  - Emotional distress [Unknown]
  - Discomfort [Unknown]
  - Anhedonia [Unknown]
  - Pain [Unknown]
  - Alopecia [Not Recovered/Not Resolved]
